FAERS Safety Report 9524204 (Version 1)
Quarter: 2013Q3

REPORT INFORMATION
  Report Type: Spontaneous
  Country: US (occurrence: US)
  Receive Date: 20130916
  Receipt Date: 20130916
  Transmission Date: 20140515
  Serious: No
  Sender: FDA-Public Use
  Company Number: US-ROXANE LABORATORIES, INC.-2013-RO-01526RO

PATIENT
  Sex: 0

DRUGS (1)
  1. METHADONE [Suspect]
     Route: 048

REACTIONS (1)
  - Rash macular [Unknown]
